FAERS Safety Report 8122565-9 (Version None)
Quarter: 2011Q4

REPORT INFORMATION
  Report Type: 
  Country: None (occurrence: None)
  Receive Date: 20111227
  Receipt Date: 20111110
  Transmission Date: 20120403
  Serious: No
  Sender: FDA-Public Use
  Company Number: PHEH2011US009235

PATIENT
  Age: 33 Year

DRUGS (8)
  1. TEGRETOL [Concomitant]
  2. PHENERGAN HCL [Concomitant]
  3. TOPAMAX [Concomitant]
  4. GABAPENTIN [Concomitant]
  5. GILENYA [Suspect]
     Indication: MULTIPLE SCLEROSIS
     Dosage: 1 DF, QD, ORAL
     Route: 048
     Dates: start: 20111027
  6. COQ10 (UBIDECARENONE) [Concomitant]
  7. CYMBALTA [Concomitant]
  8. VITAMIN D [Concomitant]

REACTIONS (2)
  - NECK PAIN [None]
  - MUSCULOSKELETAL STIFFNESS [None]
